FAERS Safety Report 5395792-1 (Version None)
Quarter: 2007Q3

REPORT INFORMATION
  Report Type: 
  Country: None (occurrence: None)
  Receive Date: 20070724
  Receipt Date: 20070712
  Transmission Date: 20080115
  Serious: Yes (Hospitalization, Other)
  Sender: FDA-Public Use
  Company Number: US-PFIZER INC-2006114469

PATIENT
  Sex: Female
  Weight: 102.1 kg

DRUGS (3)
  1. CELEBREX [Suspect]
     Indication: PAIN
     Dates: start: 19990301, end: 20050101
  2. BEXTRA [Suspect]
     Indication: PAIN
     Dates: start: 20030728, end: 20040101
  3. VIOXX [Suspect]
     Indication: ARTHRITIS
     Dates: start: 20000501, end: 20030701

REACTIONS (1)
  - DEEP VEIN THROMBOSIS [None]
